FAERS Safety Report 20511044 (Version 3)
Quarter: 2022Q2

REPORT INFORMATION
  Report Type: Spontaneous
  Country: US (occurrence: US)
  Receive Date: 20220224
  Receipt Date: 20220428
  Transmission Date: 20220720
  Serious: No
  Sender: FDA-Public Use
  Company Number: US-BIOGEN-2022BI01099262

PATIENT
  Sex: Female

DRUGS (1)
  1. VUMERITY [Suspect]
     Active Substance: DIROXIMEL FUMARATE
     Indication: Multiple sclerosis
     Route: 065
     Dates: start: 202106

REACTIONS (6)
  - Product dose omission in error [Unknown]
  - Extra dose administered [Unknown]
  - Hypoacusis [Unknown]
  - Constipation [Unknown]
  - Flushing [Unknown]
  - Diarrhoea [Unknown]
